FAERS Safety Report 7079806 (Version 3)
Quarter: 2015Q1

REPORT INFORMATION
  Report Type: Spontaneous
  Country: SI (occurrence: None)
  Receive Date: 20090805
  Receipt Date: 20150121
  Transmission Date: 20150721
  Serious: Yes (Hospitalization)
  Sender: FDA-Public Use
  Company Number: 2009002187

PATIENT
  Age: 66 Year
  Sex: Male
  Weight: 78 kg

DRUGS (6)
  1. GLOBASE (GLOBASE) [Concomitant]
  2. ERLOTINIB HYDROCHLORIDE [Suspect]
     Active Substance: ERLOTINIB HYDROCHLORIDE
     Indication: PANCREATIC CARCINOMA
     Dosage: (QD) , ORAL
     Route: 048
     Dates: start: 20090610, end: 20090715
  3. PALLADONE [Concomitant]
     Active Substance: HYDROMORPHONE HYDROCHLORIDE
  4. NAKLOFEN DUO (DICLOFENAC) [Concomitant]
  5. INSULIN (INSULIN) [Concomitant]
     Active Substance: INSULIN NOS
  6. NAKLOFEN (DICLOFENAC SODIUM) [Concomitant]

REACTIONS (5)
  - Haemoglobin decreased [None]
  - Anaemia [None]
  - Sepsis [None]
  - Disease progression [None]
  - C-reactive protein increased [None]

NARRATIVE: CASE EVENT DATE: 20090714
